FAERS Safety Report 9580253 (Version 1)
Quarter: 2013Q4

REPORT INFORMATION
  Report Type: Report from Study
  Country: PL (occurrence: PL)
  Receive Date: 20131002
  Receipt Date: 20131002
  Transmission Date: 20140711
  Serious: Yes (Death, Hospitalization, Other)
  Sender: FDA-Public Use
  Company Number: PL-ROCHE-1280970

PATIENT
  Age: 34 Year
  Sex: Female

DRUGS (1)
  1. VEMURAFENIB [Suspect]
     Indication: MALIGNANT MELANOMA
     Route: 065
     Dates: start: 20130226

REACTIONS (6)
  - Disease progression [Fatal]
  - Metastasis [Unknown]
  - Loss of consciousness [Unknown]
  - General physical health deterioration [Unknown]
  - Rash [Unknown]
  - Epilepsy [Unknown]
